FAERS Safety Report 6236837-6 (Version None)
Quarter: 2009Q2

REPORT INFORMATION
  Report Type: 
  Country: None (occurrence: None)
  Receive Date: 20090619
  Receipt Date: 20090303
  Transmission Date: 20091009
  Serious: No
  Sender: FDA-Public Use
  Company Number: US-BAYER-200910723BCC

PATIENT
  Age: 46 Year
  Sex: Female
  Weight: 50 kg

DRUGS (4)
  1. ALEVE (CAPLET) [Suspect]
     Indication: BACK PAIN
     Dosage: TOTAL DAILY DOSE: 220 MG  UNIT DOSE: 220 MG
     Dates: start: 20090216, end: 20090302
  2. ACIDOPHILUS [Concomitant]
  3. NATURAL CALCIUM [Concomitant]
  4. FISH OIL [Concomitant]

REACTIONS (1)
  - FUNGAL INFECTION [None]
